FAERS Safety Report 22381708 (Version 8)
Quarter: 2023Q4

REPORT INFORMATION
  Report Type: Report from Study
  Country: US (occurrence: US)
  Receive Date: 20230530
  Receipt Date: 20231003
  Transmission Date: 20240110
  Serious: Yes (Other)
  Sender: FDA-Public Use
  Company Number: US-INSMED, INC.-2023-01733-US

PATIENT
  Sex: Female

DRUGS (2)
  1. ARIKAYCE [Suspect]
     Active Substance: AMIKACIN
     Indication: Mycobacterium avium complex infection
     Dosage: 590 MILLIGRAM, QD
     Route: 055
     Dates: start: 202305, end: 202305
  2. ARIKAYCE [Suspect]
     Active Substance: AMIKACIN
     Dosage: 590 MILLIGRAM, QD
     Route: 055
     Dates: start: 2023, end: 2023

REACTIONS (12)
  - Laryngitis fungal [Recovering/Resolving]
  - Deafness [Unknown]
  - Dry throat [Not Recovered/Not Resolved]
  - Aphonia [Recovered/Resolved]
  - Vomiting [Unknown]
  - Dysphonia [Recovered/Resolved]
  - Dysphonia [Not Recovered/Not Resolved]
  - Cough [Unknown]
  - Malaise [Unknown]
  - Product dose omission issue [Unknown]
  - Underdose [Unknown]
  - Therapy interrupted [Unknown]

NARRATIVE: CASE EVENT DATE: 20230101
